FAERS Safety Report 19604609 (Version 2)
Quarter: 2021Q3

REPORT INFORMATION
  Report Type: Report from Study
  Country: FR (occurrence: FR)
  Receive Date: 20210723
  Receipt Date: 20210729
  Transmission Date: 20211014
  Serious: Yes (Death, Hospitalization, Other)
  Sender: FDA-Public Use
  Company Number: FR-GILEAD-2021-0541591

PATIENT
  Age: 62 Year
  Sex: Female
  Weight: 67 kg

DRUGS (5)
  1. XELODA [Concomitant]
     Active Substance: CAPECITABINE
  2. SACITUZUMAB GOVITECAN. [Suspect]
     Active Substance: SACITUZUMAB GOVITECAN
     Dosage: 10 MG/KG
     Route: 065
     Dates: start: 20210715
  3. LASILIX [FUROSEMIDE] [Concomitant]
     Active Substance: FUROSEMIDE
     Dosage: UNK
     Dates: start: 20210706, end: 20210706
  4. SACITUZUMAB GOVITECAN. [Suspect]
     Active Substance: SACITUZUMAB GOVITECAN
     Indication: TRIPLE NEGATIVE BREAST CANCER
     Dosage: 10 MG/KG
     Route: 065
     Dates: start: 20210707
  5. AVLOCARDYL [PROPRANOLOL] [Concomitant]
     Active Substance: PROPRANOLOL HYDROCHLORIDE
     Dosage: UNK
     Dates: start: 20210706, end: 20210706

REACTIONS (12)
  - Abdominal pain [Unknown]
  - Diarrhoea [Unknown]
  - Infection [Fatal]
  - Asthenia [Unknown]
  - Renal failure [Unknown]
  - Aplasia [Unknown]
  - Thrombocytopenia [Unknown]
  - Pyrexia [Unknown]
  - Vomiting [Unknown]
  - Febrile neutropenia [Unknown]
  - Septic shock [Fatal]
  - Nausea [Unknown]

NARRATIVE: CASE EVENT DATE: 202107
